FAERS Safety Report 8462527-5 (Version None)
Quarter: 2012Q2

REPORT INFORMATION
  Report Type: 
  Country: None (occurrence: None)
  Receive Date: 20120625
  Receipt Date: 20120619
  Transmission Date: 20120825
  Serious: Yes (Hospitalization)
  Sender: FDA-Public Use
  Company Number: US-BAYER-2012-061807

PATIENT
  Age: 24 Year
  Sex: Female

DRUGS (7)
  1. YASMIN [Suspect]
     Indication: CONTRACEPTION
  2. PROMETHAZINE [Concomitant]
     Indication: NAUSEA
     Dosage: 25 MG, UNK
     Route: 048
     Dates: start: 20050917
  3. NARCOTICS [Concomitant]
     Indication: PAIN
  4. DIPHENOXYLATE HCL + ATROPINE SULFATE [Concomitant]
     Indication: DIARRHOEA
     Dosage: 1-2 TABLETS Q (INTERPRETED AS EVERY) 6 HOURS
     Route: 048
     Dates: start: 20050917
  5. POTASSIUM CHLORIDE [Concomitant]
     Dosage: 20 MEQ, UNK
     Route: 048
     Dates: start: 20050917
  6. FLEXERIL [Concomitant]
     Indication: PAIN
  7. AMOXICILLIN [Concomitant]
     Dosage: 500 MG, UNK
     Route: 048
     Dates: start: 20051111

REACTIONS (1)
  - PULMONARY EMBOLISM [None]
